FAERS Safety Report 8593019-0 (Version None)
Quarter: 2012Q3

REPORT INFORMATION
  Report Type: 
  Country: None (occurrence: None)
  Receive Date: 20120814
  Receipt Date: 19910715
  Transmission Date: 20120928
  Serious: Yes (Hospitalization)
  Sender: FDA-Public Use
  Company Number: US-ROCHE-1100548

PATIENT
  Age: 60 Year
  Sex: Male

DRUGS (6)
  1. NITROGLYCERIN [Concomitant]
     Dosage: 150
  2. ACTIVASE [Suspect]
     Dosage: 63 MG PER HOUR FIRST HOUR INFUSION
  3. ACTIVASE [Suspect]
     Indication: MYOCARDIAL INFARCTION
     Dosage: 7 MG BOLUS DOSE
  4. ASPIRIN [Concomitant]
  5. ACTIVASE [Suspect]
     Dosage: 15 MG PER HOUR SECOND AND THIRD HOUR INFUSION
  6. LOPRESSOR [Concomitant]
     Route: 048

REACTIONS (2)
  - COUGH [None]
  - WHEEZING [None]
